FAERS Safety Report 5821565-9 (Version None)
Quarter: 2008Q3

REPORT INFORMATION
  Report Type: 
  Country: None (occurrence: None)
  Receive Date: 20080724
  Receipt Date: 20080721
  Transmission Date: 20090109
  Serious: Yes (Death, Hospitalization)
  Sender: FDA-Public Use
  Company Number: PHHO2000RU03395

PATIENT
  Sex: Male
  Weight: 75 kg

DRUGS (3)
  1. RAD 666 RAD+ [Suspect]
     Indication: RENAL TRANSPLANT
     Dosage: 1.5 MG, BID
     Route: 048
     Dates: start: 19990514
  2. PREDNISOLONE ACETATE [Suspect]
     Indication: RENAL TRANSPLANT
     Dosage: 15 MG DAILY
     Route: 048
     Dates: start: 19990831
  3. NEORAL [Suspect]
     Dosage: 220 MG DAILY
     Route: 048
     Dates: start: 19990423

REACTIONS (7)
  - DYSPNOEA [None]
  - FATIGUE [None]
  - GLOMERULONEPHRITIS CHRONIC [None]
  - HYPOTENSION [None]
  - MYOCARDIAL INFARCTION [None]
  - PNEUMONIA [None]
  - PYREXIA [None]
